FAERS Safety Report 6357382-3 (Version None)
Quarter: 2009Q3

REPORT INFORMATION
  Report Type: 
  Country: None (occurrence: None)
  Receive Date: 20090916
  Receipt Date: 20090909
  Transmission Date: 20100115
  Serious: Yes (Hospitalization, Other)
  Sender: FDA-Public Use
  Company Number: US-BAYER-200932468NA

PATIENT
  Age: 50 Year
  Sex: Female

DRUGS (4)
  1. BETASERON [Suspect]
     Indication: MULTIPLE SCLEROSIS
     Dosage: UNK
  2. AVONEX [Concomitant]
     Indication: MULTIPLE SCLEROSIS
     Dosage: TOTAL DAILY DOSE: 30 ?G
     Route: 030
     Dates: start: 20030101, end: 20090101
  3. AVONEX [Concomitant]
     Dosage: TOTAL DAILY DOSE: 30 ?G
     Route: 030
     Dates: start: 20090501
  4. AVONEX [Concomitant]
     Dosage: TOTAL DAILY DOSE: 30 ?G
     Route: 030
     Dates: start: 20010101, end: 20030101

REACTIONS (4)
  - COLITIS [None]
  - ENTEROCOLITIS INFECTIOUS [None]
  - NECK MASS [None]
  - THYROID CANCER [None]
